FAERS Safety Report 25842470 (Version 1)
Quarter: 2025Q3

REPORT INFORMATION
  Report Type: Spontaneous
  Country: EU (occurrence: EU)
  Receive Date: 20250924
  Receipt Date: 20250924
  Transmission Date: 20251021
  Serious: Yes (Other)
  Sender: MYLAN
  Company Number: EU-002147023-NVSC2025PL138876

PATIENT
  Age: 48 Year
  Sex: Female

DRUGS (16)
  1. ZOLEDRONIC ACID [Suspect]
     Active Substance: ZOLEDRONIC ACID
     Indication: Product used for unknown indication
  2. ZOLEDRONIC ACID [Suspect]
     Active Substance: ZOLEDRONIC ACID
     Route: 065
  3. ZOLEDRONIC ACID [Suspect]
     Active Substance: ZOLEDRONIC ACID
     Route: 065
  4. ZOLEDRONIC ACID [Suspect]
     Active Substance: ZOLEDRONIC ACID
  5. FULVESTRANT [Suspect]
     Active Substance: FULVESTRANT
     Indication: Product used for unknown indication
  6. FULVESTRANT [Suspect]
     Active Substance: FULVESTRANT
     Route: 065
  7. FULVESTRANT [Suspect]
     Active Substance: FULVESTRANT
     Route: 065
  8. FULVESTRANT [Suspect]
     Active Substance: FULVESTRANT
  9. PACLITAXEL [Suspect]
     Active Substance: PACLITAXEL
     Indication: Product used for unknown indication
  10. PACLITAXEL [Suspect]
     Active Substance: PACLITAXEL
     Route: 065
  11. PACLITAXEL [Suspect]
     Active Substance: PACLITAXEL
     Route: 065
  12. PACLITAXEL [Suspect]
     Active Substance: PACLITAXEL
  13. RIBOCICLIB [Suspect]
     Active Substance: RIBOCICLIB
     Indication: Product used for unknown indication
  14. RIBOCICLIB [Suspect]
     Active Substance: RIBOCICLIB
     Route: 065
  15. RIBOCICLIB [Suspect]
     Active Substance: RIBOCICLIB
     Route: 065
  16. RIBOCICLIB [Suspect]
     Active Substance: RIBOCICLIB

REACTIONS (4)
  - Polyneuropathy [Unknown]
  - Leukopenia [Unknown]
  - Neutropenia [Unknown]
  - Metastases to bone [Unknown]

NARRATIVE: CASE EVENT DATE: 20230201
